FAERS Safety Report 24806043 (Version 2)
Quarter: 2025Q1

REPORT INFORMATION
  Report Type: Spontaneous
  Country: US (occurrence: US)
  Receive Date: 20250103
  Receipt Date: 20250128
  Transmission Date: 20250409
  Serious: No
  Sender: PFIZER
  Company Number: US-PFIZER INC-PV202400169411

PATIENT
  Age: 57 Year
  Sex: Female

DRUGS (1)
  1. NURTEC ODT [Suspect]
     Active Substance: RIMEGEPANT SULFATE
     Indication: Migraine prophylaxis
     Dosage: TAKE 1 TABLET EVERY OTHER DAY (ON HOLD)
     Route: 048

REACTIONS (3)
  - Migraine [Not Recovered/Not Resolved]
  - Stress [Unknown]
  - Sensitivity to weather change [Unknown]
